FAERS Safety Report 12969853 (Version 1)
Quarter: 2016Q4

REPORT INFORMATION
  Report Type: Spontaneous
  Country: US (occurrence: US)
  Receive Date: 20161123
  Receipt Date: 20161123
  Transmission Date: 20170207
  Serious: No
  Sender: FDA-Public Use
  Company Number: US-BAYER-2016-223872

PATIENT
  Age: 55 Year
  Sex: Female

DRUGS (1)
  1. CLIMARA [Suspect]
     Active Substance: ESTRADIOL
     Dosage: 0.05 MG
     Route: 062
     Dates: start: 201611, end: 20161115

REACTIONS (5)
  - Malaise [Recovering/Resolving]
  - Weight increased [Unknown]
  - Pain [Recovering/Resolving]
  - Fatigue [None]
  - Influenza like illness [Recovering/Resolving]

NARRATIVE: CASE EVENT DATE: 201611
